FAERS Safety Report 5737001-7 (Version None)
Quarter: 2008Q2

REPORT INFORMATION
  Report Type: 
  Country: None (occurrence: None)
  Receive Date: 20080514
  Receipt Date: 20080512
  Transmission Date: 20081010
  Serious: Yes (Hospitalization)
  Sender: FDA-Public Use
  Company Number: FR-BRISTOL-MYERS SQUIBB COMPANY-14181176

PATIENT
  Age: 66 Year
  Sex: Female

DRUGS (11)
  1. APROVEL TABS [Suspect]
     Indication: HYPERTENSION
     Route: 048
  2. GLUCOPHAGE [Suspect]
     Indication: DIABETES MELLITUS
     Route: 048
     Dates: end: 20080415
  3. ALDACTONE [Suspect]
     Indication: HYPERTENSION
     Route: 048
     Dates: start: 20080217, end: 20080415
  4. NEXIUM [Concomitant]
     Route: 048
  5. PLAVIX [Concomitant]
     Indication: MYOCARDIAL ISCHAEMIA
     Route: 048
  6. PROPRANOLOL HYDROCHLORIDE [Concomitant]
     Indication: HYPERTENSION
     Route: 048
  7. LEVOTHYROXINE SODIUM [Concomitant]
     Route: 048
  8. TAHOR [Concomitant]
     Route: 048
  9. TARDYFERON [Concomitant]
     Route: 048
     Dates: start: 20080201
  10. LANTUS [Concomitant]
     Route: 058
  11. NOVORAPID [Concomitant]
     Route: 058

REACTIONS (6)
  - ACIDOSIS [None]
  - BLOOD CREATININE INCREASED [None]
  - DIABETES MELLITUS INADEQUATE CONTROL [None]
  - HEPATIC ENCEPHALOPATHY [None]
  - HYPERKALAEMIA [None]
  - HYPERLACTACIDAEMIA [None]
